FAERS Safety Report 9884516 (Version 1)
Quarter: 2014Q1

REPORT INFORMATION
  Report Type: Spontaneous
  Country: US (occurrence: US)
  Receive Date: 20140210
  Receipt Date: 20140210
  Transmission Date: 20141002
  Serious: No
  Sender: FDA-Public Use
  Company Number: US-ALLERGAN-1319420US

PATIENT
  Sex: Female

DRUGS (5)
  1. BOTOX COSMETIC [Suspect]
     Indication: SKIN WRINKLING
     Dosage: 20 UNITS, SINGLE
     Route: 030
     Dates: start: 20130801, end: 20130801
  2. JUVEDERM ULTRA PLUS XC [Suspect]
     Indication: DERMAL FILLER INJECTION
     Dosage: UNK, SINGLE
     Dates: start: 20130801, end: 20130801
  3. JUVEDERM ULTRA PLUS XC [Suspect]
     Indication: DERMAL FILLER INJECTION
  4. SKIN MEDICA TNS EYE CREAM [Suspect]
     Indication: SKIN WRINKLING
     Dosage: UNK
     Dates: start: 20130801, end: 20130808
  5. SKIN MEDICA SPF 30 [Concomitant]
     Indication: PROPHYLAXIS

REACTIONS (4)
  - Eye swelling [Recovered/Resolved]
  - Erythema [Recovered/Resolved]
  - Pruritus [Recovered/Resolved]
  - Rash [Not Recovered/Not Resolved]
